FAERS Safety Report 8698016 (Version 2)
Quarter: 2018Q4

REPORT INFORMATION
  Report Type: Report from Study
  Country: SE (occurrence: SE)
  Receive Date: 20120801
  Receipt Date: 20181227
  Transmission Date: 20190205
  Serious: Yes (Hospitalization, Other)
  Sender: FDA-Public Use
  Company Number: SE-AMGEN-QUU411841

PATIENT
  Age: 52 Year
  Sex: Female

DRUGS (4)
  1. HUMIRA [Suspect]
     Active Substance: ADALIMUMAB
     Indication: PRODUCT USED FOR UNKNOWN INDICATION
     Dosage: 40 MG, UNK
     Route: 065
     Dates: start: 2008, end: 2008
  2. ETANERCEPT [Suspect]
     Active Substance: ETANERCEPT
     Indication: RHEUMATOID ARTHRITIS
     Dosage: 25 MG, QWK
     Route: 058
     Dates: start: 20090729, end: 20091223
  3. MABTHERA [Concomitant]
     Active Substance: RITUXIMAB
     Dosage: UNK
  4. IMUREL [Suspect]
     Active Substance: AZATHIOPRINE SODIUM
     Indication: PRODUCT USED FOR UNKNOWN INDICATION
     Dosage: 50 MG, UNK
     Route: 048
     Dates: start: 20071102

REACTIONS (4)
  - Gastrointestinal carcinoma [Unknown]
  - Drug ineffective [Not Recovered/Not Resolved]
  - Skin disorder [Unknown]
  - Tooth infection [Unknown]

NARRATIVE: CASE EVENT DATE: 20100201
